FAERS Safety Report 20047527 (Version 14)
Quarter: 2025Q3

REPORT INFORMATION
  Report Type: Report from Study
  Country: US (occurrence: US)
  Receive Date: 20211109
  Receipt Date: 20250710
  Transmission Date: 20251021
  Serious: Yes (Hospitalization, Other)
  Sender: NOVARTIS
  Company Number: US-NOVARTISPH-NVSC2021US251847

PATIENT
  Sex: Female

DRUGS (4)
  1. KESIMPTA [Suspect]
     Active Substance: OFATUMUMAB
     Indication: Multiple sclerosis
     Route: 058
     Dates: start: 20210723
  2. KESIMPTA [Suspect]
     Active Substance: OFATUMUMAB
     Route: 058
     Dates: start: 20220304
  3. KESIMPTA [Suspect]
     Active Substance: OFATUMUMAB
     Route: 058
     Dates: start: 20220408
  4. KESIMPTA [Suspect]
     Active Substance: OFATUMUMAB
     Route: 058

REACTIONS (16)
  - Carpal tunnel syndrome [Recovering/Resolving]
  - COVID-19 pneumonia [Recovering/Resolving]
  - Illness [Recovering/Resolving]
  - Influenza [Recovering/Resolving]
  - Multiple sclerosis relapse [Recovering/Resolving]
  - Eye disorder [Recovering/Resolving]
  - Muscle spasms [Not Recovered/Not Resolved]
  - Memory impairment [Not Recovered/Not Resolved]
  - Cognitive disorder [Not Recovered/Not Resolved]
  - Headache [Not Recovered/Not Resolved]
  - Fatigue [Unknown]
  - Blister [Recovering/Resolving]
  - Peripheral swelling [Recovering/Resolving]
  - Erythema [Unknown]
  - Insomnia [Unknown]
  - Product dose omission issue [Unknown]
